FAERS Safety Report 5897287-5 (Version None)
Quarter: 2008Q3

REPORT INFORMATION
  Report Type: 
  Country: None (occurrence: None)
  Receive Date: 20080924
  Receipt Date: 20080924
  Transmission Date: 20090109
  Serious: Yes (Hospitalization)
  Sender: FDA-Public Use
  Company Number: None

PATIENT
  Age: 44 Year
  Sex: Male
  Weight: 88.905 kg

DRUGS (1)
  1. CHANTIX [Suspect]
     Indication: SMOKING CESSATION THERAPY
     Dosage: 0.5MG DAILY DAYS 1-3 ORAL
     Route: 048
     Dates: start: 20080709, end: 20080718

REACTIONS (4)
  - ANHEDONIA [None]
  - FEELING OF DESPAIR [None]
  - INSOMNIA [None]
  - SUICIDAL IDEATION [None]
